FAERS Safety Report 4389867-3 (Version None)
Quarter: 2004Q2

REPORT INFORMATION
  Report Type: 
  Country: None (occurrence: None)
  Receive Date: 20040630
  Receipt Date: 20040615
  Transmission Date: 20050107
  Serious: Yes (Death)
  Sender: FDA-Public Use
  Company Number: US-JNJFOC-20040403692

PATIENT
  Age: 3 Month
  Sex: Female
  Weight: 5 kg

DRUGS (7)
  1. REMICADE [Suspect]
     Indication: KAWASAKI'S DISEASE
     Dosage: 5 MG/KG, 1 IN 1 DAY, INTRAVENOUS
     Route: 042
  2. REMICADE [Suspect]
     Indication: PYREXIA
     Dosage: 5 MG/KG, 1 IN 1 DAY, INTRAVENOUS
     Route: 042
  3. STEROIDS (CORTICOSTEROIDS NOS) [Suspect]
     Indication: DRUG USE FOR UNKNOWN INDICATION
  4. PLAVIX [Concomitant]
  5. METHYLPREDNISOLONE [Concomitant]
  6. IMMUNE GLOBULIN INTRAVENOUS (HUMAN) [Concomitant]
  7. ASPIRIN [Concomitant]

REACTIONS (3)
  - CARDIAC ARREST [None]
  - GASTROINTESTINAL HAEMORRHAGE [None]
  - MYOCARDIAL INFARCTION [None]
